FAERS Safety Report 16728791 (Version 1)
Quarter: 2019Q3

REPORT INFORMATION
  Report Type: Spontaneous
  Country: AU (occurrence: AU)
  Receive Date: 20190822
  Receipt Date: 20190822
  Transmission Date: 20191005
  Serious: Yes (Other)
  Sender: FDA-Public Use
  Company Number: AU-ACCORD-152369

PATIENT
  Age: 52 Year
  Sex: Male

DRUGS (11)
  1. ALLOPURINOL. [Suspect]
     Active Substance: ALLOPURINOL
     Indication: ADENINE PHOSPHORIBOSYL TRANSFERASE DEFICIENCY
     Dates: start: 2018
  2. ALLOPURINOL. [Suspect]
     Active Substance: ALLOPURINOL
     Indication: ADENINE PHOSPHORIBOSYL TRANSFERASE DEFICIENCY
     Dates: start: 2013
  3. METHYLPREDNISOLONE. [Suspect]
     Active Substance: METHYLPREDNISOLONE
     Indication: IMMUNOSUPPRESSANT DRUG THERAPY
     Dosage: PULSE
     Route: 042
     Dates: start: 201804
  4. ALLOPURINOL. [Suspect]
     Active Substance: ALLOPURINOL
     Indication: ADENINE PHOSPHORIBOSYL TRANSFERASE DEFICIENCY
  5. TACROLIMUS. [Suspect]
     Active Substance: TACROLIMUS
     Indication: IMMUNOSUPPRESSANT DRUG THERAPY
     Dates: start: 2018
  6. FEBOXUSTAT [Concomitant]
     Indication: ADENINE PHOSPHORIBOSYL TRANSFERASE DEFICIENCY
     Dates: start: 2018
  7. ALLOPURINOL. [Suspect]
     Active Substance: ALLOPURINOL
     Indication: ADENINE PHOSPHORIBOSYL TRANSFERASE DEFICIENCY
  8. MYCOPHENOLATE MOFETIL/MYCOPHENOLATE SODIUM/MYCOPHENOLIC ACID [Suspect]
     Active Substance: MYCOPHENOLIC ACID
     Indication: IMMUNOSUPPRESSANT DRUG THERAPY
     Dates: start: 2018
  9. FEBUXOSTAT. [Concomitant]
     Active Substance: FEBUXOSTAT
     Indication: ADENINE PHOSPHORIBOSYL TRANSFERASE DEFICIENCY
     Dates: start: 2018
  10. PREDNISOLONE. [Suspect]
     Active Substance: PREDNISOLONE
     Indication: IMMUNOSUPPRESSANT DRUG THERAPY
     Dates: start: 2018
  11. FEBOXUSTAT [Concomitant]
     Indication: ADENINE PHOSPHORIBOSYL TRANSFERASE DEFICIENCY
     Dates: start: 2018

REACTIONS (5)
  - Diarrhoea [Unknown]
  - Cytomegalovirus nephritis [Recovering/Resolving]
  - Rosacea [Recovered/Resolved]
  - Cytomegalovirus infection [Unknown]
  - Cytomegalovirus colitis [Unknown]

NARRATIVE: CASE EVENT DATE: 2018
